FAERS Safety Report 7789100-6 (Version None)
Quarter: 2011Q3

REPORT INFORMATION
  Report Type: 
  Country: None (occurrence: None)
  Receive Date: 20110930
  Receipt Date: 20110920
  Transmission Date: 20111222
  Serious: Yes (Death, Other)
  Sender: FDA-Public Use
  Company Number: IT-JNJFOC-20110910147

PATIENT
  Age: 62 Year
  Sex: Male

DRUGS (48)
  1. DOXORUBICIN HYDROCHLORIDE [Suspect]
     Route: 042
  2. DOXORUBICIN HYDROCHLORIDE [Suspect]
     Route: 042
  3. DOXORUBICIN HYDROCHLORIDE [Suspect]
     Route: 042
  4. PREDNISOLONE [Suspect]
     Route: 065
  5. PREDNISOLONE [Suspect]
     Route: 065
  6. PREDNISOLONE [Suspect]
     Route: 065
  7. ETOPOSIDE [Suspect]
     Route: 065
  8. CYCLOPHOSPHAMIDE [Suspect]
     Route: 065
  9. VINCRISTINE [Suspect]
     Indication: B-CELL LYMPHOMA
     Route: 065
  10. PREDNISOLONE [Suspect]
     Route: 065
  11. ETOPOSIDE [Suspect]
     Route: 065
  12. BLEOMYCIN SULFATE [Suspect]
     Route: 065
  13. BLEOMYCIN SULFATE [Suspect]
     Route: 065
  14. PREDNISOLONE [Suspect]
     Indication: B-CELL LYMPHOMA
     Route: 065
  15. ETOPOSIDE [Suspect]
     Route: 065
  16. ETOPOSIDE [Suspect]
     Route: 065
  17. ETOPOSIDE [Suspect]
     Route: 065
  18. CYCLOPHOSPHAMIDE [Suspect]
     Route: 065
  19. CYCLOPHOSPHAMIDE [Suspect]
     Route: 065
  20. VINCRISTINE [Suspect]
     Route: 065
  21. VINCRISTINE [Suspect]
     Route: 065
  22. BLEOMYCIN SULFATE [Suspect]
     Route: 065
  23. BLEOMYCIN SULFATE [Suspect]
     Route: 065
  24. DOXORUBICIN HYDROCHLORIDE [Suspect]
     Route: 042
  25. ETOPOSIDE [Suspect]
     Route: 065
  26. BLEOMYCIN SULFATE [Suspect]
     Indication: B-CELL LYMPHOMA
     Route: 065
  27. DOXORUBICIN HYDROCHLORIDE [Suspect]
     Route: 042
  28. DOXORUBICIN HYDROCHLORIDE [Suspect]
     Route: 042
  29. PREDNISOLONE [Suspect]
     Route: 065
  30. CYCLOPHOSPHAMIDE [Suspect]
     Route: 065
  31. VINCRISTINE [Suspect]
     Route: 065
  32. VINCRISTINE [Suspect]
     Route: 065
  33. BLEOMYCIN SULFATE [Suspect]
     Route: 065
  34. BLEOMYCIN SULFATE [Suspect]
     Route: 065
  35. DOXORUBICIN HYDROCHLORIDE [Suspect]
     Route: 042
  36. CYCLOPHOSPHAMIDE [Suspect]
     Route: 065
  37. VINCRISTINE [Suspect]
     Route: 065
  38. VINCRISTINE [Suspect]
     Route: 065
  39. BLEOMYCIN SULFATE [Suspect]
     Route: 065
  40. ETOPOSIDE [Suspect]
     Indication: B-CELL LYMPHOMA
     Route: 065
  41. ETOPOSIDE [Suspect]
     Route: 065
  42. CYCLOPHOSPHAMIDE [Suspect]
     Indication: B-CELL LYMPHOMA
     Route: 065
  43. VINCRISTINE [Suspect]
     Route: 065
  44. DOXORUBICIN HYDROCHLORIDE [Suspect]
     Indication: B-CELL LYMPHOMA
     Route: 042
  45. PREDNISOLONE [Suspect]
     Route: 065
  46. PREDNISOLONE [Suspect]
     Route: 065
  47. CYCLOPHOSPHAMIDE [Suspect]
     Route: 065
  48. CYCLOPHOSPHAMIDE [Suspect]
     Route: 065

REACTIONS (2)
  - MYELODYSPLASTIC SYNDROME [None]
  - CONGESTIVE CARDIOMYOPATHY [None]
